FAERS Safety Report 24281061 (Version 3)
Quarter: 2024Q3

REPORT INFORMATION
  Report Type: Spontaneous
  Country: JP (occurrence: JP)
  Receive Date: 20240904
  Receipt Date: 20240910
  Transmission Date: 20241017
  Serious: Yes (Hospitalization, Other)
  Sender: PFIZER
  Company Number: JP-MLMSERVICE-20240823-PI170495-00222-1

PATIENT
  Age: 43 Year
  Sex: Female

DRUGS (4)
  1. METRONIDAZOLE [Suspect]
     Active Substance: METRONIDAZOLE
     Indication: Pelvic inflammatory disease
     Dosage: 1500 MG, 1X/DAY
     Route: 042
  2. METRONIDAZOLE [Suspect]
     Active Substance: METRONIDAZOLE
     Indication: Infection
  3. CEFMETAZOLE [Suspect]
     Active Substance: CEFMETAZOLE
     Indication: Pelvic inflammatory disease
     Dosage: 4 G, 1X/DAY
     Route: 042
  4. CEFMETAZOLE [Suspect]
     Active Substance: CEFMETAZOLE
     Indication: Infection

REACTIONS (2)
  - Liver disorder [Recovering/Resolving]
  - Drug ineffective [Unknown]
